FAERS Safety Report 23315863 (Version 3)
Quarter: 2023Q4

REPORT INFORMATION
  Report Type: Report from Study
  Country: CN (occurrence: CN)
  Receive Date: 20231219
  Receipt Date: 20231227
  Transmission Date: 20240110
  Serious: No
  Sender: FDA-Public Use
  Company Number: CN-PFIZER INC-PV202300202905

PATIENT
  Age: 86 Year
  Sex: Female

DRUGS (3)
  1. NIRMATRELVIR\RITONAVIR [Suspect]
     Active Substance: NIRMATRELVIR\RITONAVIR
     Indication: COVID-19
     Dosage: UNK, 2X/DAY
     Route: 048
     Dates: start: 20220428, end: 20220503
  2. NIRMATRELVIR\RITONAVIR [Suspect]
     Active Substance: NIRMATRELVIR\RITONAVIR
     Dosage: [RITONAVIR 100 MG]/[NIRMATRELVIR 300 MG], 2X/DAY
     Route: 048
     Dates: start: 20220508, end: 20220513
  3. NIRMATRELVIR\RITONAVIR [Suspect]
     Active Substance: NIRMATRELVIR\RITONAVIR
     Dosage: [RITONAVIR 100 MG]/[NIRMATRELVIR 300 MG], 2X/DAY
     Route: 048
     Dates: start: 20220516, end: 20220521

REACTIONS (1)
  - Overdose [Unknown]
